FAERS Safety Report 6182011-1 (Version None)
Quarter: 2009Q2

REPORT INFORMATION
  Report Type: 
  Country: None (occurrence: None)
  Receive Date: 20090505
  Receipt Date: 20090423
  Transmission Date: 20091009
  Serious: Yes (Hospitalization)
  Sender: FDA-Public Use
  Company Number: AE-2009-029

PATIENT
  Age: 58 Year
  Sex: Female
  Weight: 65 kg

DRUGS (6)
  1. METOPROLOL [Suspect]
     Indication: HYPERTENSION
     Dosage: 100MG, QD, ORAL
     Route: 048
  2. PREGABALIN [Suspect]
     Indication: NEUROPATHY PERIPHERAL
     Dosage: 75MG, ORAL
     Route: 048
  3. CITALOPRAM HYDROBROMIDE [Concomitant]
  4. MEMANTINE HCL [Concomitant]
  5. RAMIPRIL [Concomitant]
  6. HYDROCHLOROTHIAZIDE [Concomitant]

REACTIONS (1)
  - HYPOGLYCAEMIA [None]
